FAERS Safety Report 16474886 (Version 8)
Quarter: 2020Q3

REPORT INFORMATION
  Report Type: Report from Study
  Country: CO (occurrence: CO)
  Receive Date: 20190625
  Receipt Date: 20200717
  Transmission Date: 20201102
  Serious: Yes (Hospitalization, Other)
  Sender: FDA-Public Use
  Company Number: CO-ASTELLAS-2019US021141

PATIENT
  Age: 38 Year
  Sex: Male

DRUGS (16)
  1. TACROLIMUS. [Suspect]
     Active Substance: TACROLIMUS
     Indication: RENAL TRANSPLANT
     Dosage: 4 MG (4 CAPSULES OF 1 MG), ONCE DAILY
     Route: 048
     Dates: start: 20190526, end: 201908
  2. EZETIMIBE/SIMVASTATIN [Concomitant]
     Active Substance: EZETIMIBE\SIMVASTATIN
     Indication: PRODUCT USED FOR UNKNOWN INDICATION
     Route: 065
  3. PREDNISOLONE. [Concomitant]
     Active Substance: PREDNISOLONE
     Indication: PRODUCT USED FOR UNKNOWN INDICATION
     Dosage: 0.5 DF (HALF CAPSULE), ONCE DAILY
     Route: 048
  4. TACROLIMUS. [Suspect]
     Active Substance: TACROLIMUS
     Dosage: 2 MG (2 CAPSULES OF 1 MG), ONCE DAILY
     Route: 048
     Dates: start: 20190915
  5. FUROSEMIDE. [Concomitant]
     Active Substance: FUROSEMIDE
     Indication: PRODUCT USED FOR UNKNOWN INDICATION
     Route: 065
  6. ENALAPRIL [Concomitant]
     Active Substance: ENALAPRIL
     Indication: PRODUCT USED FOR UNKNOWN INDICATION
     Route: 065
     Dates: end: 20190522
  7. FUROSEMIDE. [Concomitant]
     Active Substance: FUROSEMIDE
     Dosage: DOSE DECREASED TO 1, ONCE DAILY
     Route: 065
  8. PREDNISOLONE. [Concomitant]
     Active Substance: PREDNISOLONE
     Dosage: 1 ONE DAY AND NEXT DAY 2 CAPSULES, EVERY OTHER DAY
     Route: 048
  9. TACROLIMUS. [Suspect]
     Active Substance: TACROLIMUS
     Indication: RENAL TRANSPLANT
     Dosage: 10 MG, ONCE DAILY (2 CAP X 5MG)
     Route: 048
     Dates: start: 20190509, end: 20190522
  10. METOPROLOL. [Concomitant]
     Active Substance: METOPROLOL
     Indication: PRODUCT USED FOR UNKNOWN INDICATION
     Route: 065
  11. SPIRONOLACTONE. [Concomitant]
     Active Substance: SPIRONOLACTONE
     Indication: PRODUCT USED FOR UNKNOWN INDICATION
     Route: 065
     Dates: end: 20190522
  12. TACROLIMUS. [Suspect]
     Active Substance: TACROLIMUS
     Indication: FLUID RETENTION
     Dosage: UNK UNK, UNKNOWN FREQ.
     Route: 048
  13. TACROLIMUS. [Suspect]
     Active Substance: TACROLIMUS
     Indication: FLUID RETENTION
     Dosage: 3 MG (3 CAPSULES OF 1 MG), ONCE DAILY
     Route: 048
     Dates: start: 201908, end: 20190914
  14. SIROLIMUS. [Suspect]
     Active Substance: SIROLIMUS
     Indication: PRODUCT USED FOR UNKNOWN INDICATION
     Dosage: 2 MG, ONCE DAILY, STOPPED ON 08?MAY?2019
     Route: 065
     Dates: start: 201901
  15. MYFORTIC [Concomitant]
     Active Substance: MYCOPHENOLATE SODIUM
     Indication: RENAL TRANSPLANT
     Route: 048
     Dates: start: 20080815
  16. ALLOPURINOL. [Concomitant]
     Active Substance: ALLOPURINOL
     Indication: PRODUCT USED FOR UNKNOWN INDICATION
     Route: 065

REACTIONS (9)
  - Toxicity to various agents [Recovering/Resolving]
  - Feeling hot [Recovered/Resolved]
  - Product supply issue [Unknown]
  - Lymphoedema [Not Recovered/Not Resolved]
  - Blood creatinine increased [Recovered/Resolved]
  - Fluid retention [Not Recovered/Not Resolved]
  - Toxicity to various agents [Unknown]
  - Kidney transplant rejection [Recovered/Resolved]
  - Product prescribing error [Unknown]

NARRATIVE: CASE EVENT DATE: 201901
